FAERS Safety Report 12998811 (Version 1)
Quarter: 2016Q4

REPORT INFORMATION
  Report Type: Spontaneous
  Country: SE (occurrence: SE)
  Receive Date: 20161205
  Receipt Date: 20161205
  Transmission Date: 20170207
  Serious: Yes (Hospitalization)
  Sender: FDA-Public Use
  Company Number: SE-PFIZER INC-2016555785

PATIENT
  Age: 50 Year
  Sex: Female
  Weight: 47 kg

DRUGS (5)
  1. ALVEDON [Suspect]
     Active Substance: ACETAMINOPHEN
     Dosage: 16625 MG, SINGLE, 20-25 TABLETS
     Dates: start: 20150707, end: 20150707
  2. ALVEDON [Suspect]
     Active Substance: ACETAMINOPHEN
     Dosage: 10 G, SINGLE
     Dates: start: 20150707, end: 20150707
  3. LYRICA [Suspect]
     Active Substance: PREGABALIN
     Dosage: 900 MG, SINGLE
     Dates: start: 20150707, end: 20150707
  4. ZOLPIDEM [Suspect]
     Active Substance: ZOLPIDEM\ZOLPIDEM TARTRATE
     Dosage: 50 MG, SINGLE
     Dates: start: 20150707, end: 20150707
  5. STESOLID [Suspect]
     Active Substance: DIAZEPAM
     Dosage: 5 DF, SINGLE
     Dates: start: 20150707, end: 20150707

REACTIONS (4)
  - Intentional self-injury [Recovered/Resolved]
  - Overdose [Recovered/Resolved]
  - Toxicity to various agents [Recovered/Resolved]
  - Analgesic drug level increased [Unknown]

NARRATIVE: CASE EVENT DATE: 20150707
